FAERS Safety Report 21615788 (Version 1)
Quarter: 2022Q4

REPORT INFORMATION
  Report Type: Spontaneous
  Country: US (occurrence: None)
  Receive Date: 20221117
  Receipt Date: 20221117
  Transmission Date: 20230113
  Serious: Yes (Other)
  Sender: FDA-Public Use
  Company Number: None

PATIENT
  Age: 43 Year
  Sex: Female

DRUGS (1)
  1. TALTZ [Suspect]
     Active Substance: IXEKIZUMAB
     Indication: Rheumatoid arthritis
     Dosage: FREQUENCY : ONCE;?
     Route: 058
     Dates: start: 20221029

REACTIONS (5)
  - Dizziness [None]
  - Alopecia [None]
  - Headache [None]
  - Menstruation irregular [None]
  - Fatigue [None]

NARRATIVE: CASE EVENT DATE: 20221029
